FAERS Safety Report 19119447 (Version 1)
Quarter: 2021Q2

REPORT INFORMATION
  Report Type: Spontaneous
  Country: US (occurrence: US)
  Receive Date: 20210411
  Receipt Date: 20210411
  Transmission Date: 20210717
  Serious: Yes (Hospitalization)
  Sender: FDA-Public Use
  Company Number: US-BEH-2021130142

PATIENT
  Age: 57 Year
  Sex: Female

DRUGS (1)
  1. HIZENTRA [Suspect]
     Active Substance: HUMAN IMMUNOGLOBULIN G
     Indication: IMMUNODEFICIENCY COMMON VARIABLE
     Dosage: 20 GRAM, EVERY 3 WEEKS
     Route: 058
     Dates: start: 20180126

REACTIONS (3)
  - No adverse event [Unknown]
  - Circumstance or information capable of leading to medication error [Unknown]
  - Pneumonia [Unknown]

NARRATIVE: CASE EVENT DATE: 2021
